FAERS Safety Report 12853810 (Version 1)
Quarter: 2016Q4

REPORT INFORMATION
  Report Type: Report from Study
  Country: AR (occurrence: AR)
  Receive Date: 20161017
  Receipt Date: 20161017
  Transmission Date: 20170207
  Serious: Yes (Other)
  Sender: FDA-Public Use
  Company Number: PHHY2016AR141716

PATIENT
  Sex: Female

DRUGS (1)
  1. DIOVAN [Suspect]
     Active Substance: VALSARTAN
     Indication: HYPERTENSION
     Dosage: 0.5 DF (80, UNITS NOT REPORTED), QD (9 YEARS AGO APPROXIMATELY)
     Route: 065

REACTIONS (2)
  - Wrong technique in product usage process [Unknown]
  - Bronchiectasis [Not Recovered/Not Resolved]
